FAERS Safety Report 5679936-X (Version None)
Quarter: 2008Q1

REPORT INFORMATION
  Report Type: 
  Country: None (occurrence: None)
  Receive Date: 20080324
  Receipt Date: 20080306
  Transmission Date: 20080703
  Serious: Yes (Other)
  Sender: FDA-Public Use
  Company Number: 8030784

PATIENT
  Age: 73 Year
  Sex: Female
  Weight: 65 kg

DRUGS (1)
  1. XUSAL [Suspect]
     Indication: SEASONAL ALLERGY
     Dosage: 1 DF /D
     Dates: start: 20071201

REACTIONS (1)
  - GAMMA-GLUTAMYLTRANSFERASE INCREASED [None]
